FAERS Safety Report 8191354-1 (Version None)
Quarter: 2012Q1

REPORT INFORMATION
  Report Type: 
  Country: None (occurrence: None)
  Receive Date: 20120221
  Receipt Date: 20111107
  Transmission Date: 20120608
  Serious: No
  Sender: FDA-Public Use
  Company Number: 045387

PATIENT
  Sex: Male
  Weight: 89.3 kg

DRUGS (4)
  1. LACOSAMIDE [Suspect]
     Indication: EPILEPSY
     Dosage: 500 MG, 300 MG IN AM AND 200 MG IN PM; 200 MG BID ORAL
     Route: 048
     Dates: start: 20110501, end: 20111006
  2. LACOSAMIDE [Suspect]
     Indication: EPILEPSY
     Dosage: 500 MG, 300 MG IN AM AND 200 MG IN PM; 200 MG BID ORAL
     Route: 048
     Dates: start: 20111007
  3. ZOLPIDEM [Concomitant]
  4. TRILEPTAL [Concomitant]

REACTIONS (4)
  - RETCHING [None]
  - DIPLOPIA [None]
  - SLEEP DISORDER [None]
  - VISION BLURRED [None]
